FAERS Safety Report 4906461-3 (Version None)
Quarter: 2006Q1

REPORT INFORMATION
  Report Type: 
  Country: None (occurrence: None)
  Receive Date: 20060207
  Receipt Date: 20060124
  Transmission Date: 20060701
  Serious: Yes (Other)
  Sender: FDA-Public Use
  Company Number: 2006AL000264

PATIENT
  Age: 41 Year
  Sex: Male

DRUGS (1)
  1. SERAX [Suspect]
     Dosage: 300 MG; QD; PO
     Route: 048

REACTIONS (1)
  - DRUG ABUSER [None]
